FAERS Safety Report 18014643 (Version 1)
Quarter: 2020Q3

REPORT INFORMATION
  Report Type: Spontaneous
  Country: US (occurrence: US)
  Receive Date: 20200713
  Receipt Date: 20200713
  Transmission Date: 20201103
  Serious: Yes (Hospitalization)
  Sender: FDA-Public Use
  Company Number: None

PATIENT
  Sex: Female

DRUGS (21)
  1. FLUOXETINE [Concomitant]
     Active Substance: FLUOXETINE HYDROCHLORIDE
  2. GABAPENTIN. [Concomitant]
     Active Substance: GABAPENTIN
  3. HYDROCHLOROT [Concomitant]
     Active Substance: HYDROCHLOROTHIAZIDE
  4. SELENIUM [Concomitant]
     Active Substance: SELENIUM
  5. IODINE. [Concomitant]
     Active Substance: IODINE
  6. LISINOPRIL. [Concomitant]
     Active Substance: LISINOPRIL
  7. TESTOSERONE [Concomitant]
  8. COSENTYX [Suspect]
     Active Substance: SECUKINUMAB
     Indication: PSORIASIS
     Dosage: ?          OTHER FREQUENCY:EVERY 4 WEEKS;?
     Route: 058
     Dates: start: 20181030
  9. ATORVASTATIN [Concomitant]
     Active Substance: ATORVASTATIN
  10. CETIRIZINE [Concomitant]
     Active Substance: CETIRIZINE HYDROCHLORIDE
  11. CBD KINGS [Concomitant]
  12. DHEA [Concomitant]
     Active Substance: PRASTERONE
  13. ERGOACIFER [Concomitant]
  14. FLONASE [Concomitant]
     Active Substance: FLUTICASONE PROPIONATE
  15. MILK THISTLE [Concomitant]
     Active Substance: DIETARY SUPPLEMENT\HERBALS\MILK THISTLE
  16. LIOTHYRONINE [Concomitant]
     Active Substance: LIOTHYRONINE
  17. AZELASTINE. [Concomitant]
     Active Substance: AZELASTINE HYDROCHLORIDE
  18. PROGESTERONE. [Concomitant]
     Active Substance: PROGESTERONE
  19. CYANOCOBALAM [Concomitant]
     Active Substance: CYANOCOBALAMIN
  20. FLUTICASONE. [Concomitant]
     Active Substance: FLUTICASONE
  21. LEVOTHYROXIN [Concomitant]
     Active Substance: LEVOTHYROXINE

REACTIONS (3)
  - Therapy interrupted [None]
  - Spinal fusion surgery [None]
  - Post procedural infection [None]
